FAERS Safety Report 8327285-3 (Version None)
Quarter: 2012Q2

REPORT INFORMATION
  Report Type: 
  Country: None (occurrence: None)
  Receive Date: 20120502
  Receipt Date: 20120419
  Transmission Date: 20120825
  Serious: Yes (Hospitalization)
  Sender: FDA-Public Use
  Company Number: US-BIOGENIDEC-2011BI038774

PATIENT
  Age: 52 Year
  Sex: Male
  Weight: 112 kg

DRUGS (25)
  1. TAMSULOSIN HCL [Concomitant]
     Route: 048
  2. METOPROLOL TARTRATE [Concomitant]
     Route: 048
  3. POTASSIUM CHLORIDE [Concomitant]
     Route: 048
  4. PROVIGIL [Concomitant]
     Route: 048
  5. OMEPRAZOLE [Concomitant]
     Route: 048
  6. VIAGRA [Concomitant]
     Route: 048
  7. AVONEX [Concomitant]
     Indication: MULTIPLE SCLEROSIS
     Route: 030
  8. CHOLECALCIFEROL [Concomitant]
     Route: 048
  9. PRAVACHOL [Concomitant]
     Route: 048
  10. VITAMIN B COMPLEX CAP [Concomitant]
  11. FUROSEMIDE [Concomitant]
     Route: 048
  12. CHOLECALCIFEROL [Concomitant]
     Route: 048
  13. COENZYME Q10 [Concomitant]
     Route: 048
  14. TEMAZEPAM [Concomitant]
     Indication: SLEEP DISORDER
     Route: 048
  15. VESICARE [Concomitant]
     Route: 048
  16. HYDROCHLOROTHIAZIDE [Concomitant]
     Route: 048
  17. WELLBUTRIN [Concomitant]
     Route: 048
  18. ASPIRIN [Concomitant]
     Route: 048
  19. CETIRIZINE [Concomitant]
     Route: 048
  20. TYSABRI [Suspect]
     Indication: MULTIPLE SCLEROSIS
     Route: 042
     Dates: start: 20070327, end: 20100903
  21. DILAUDID [Concomitant]
     Route: 042
  22. CALCIUM [Concomitant]
     Route: 048
  23. TYSABRI [Suspect]
     Route: 042
     Dates: start: 20110111, end: 20110902
  24. TIZANIDINE HCL [Concomitant]
     Route: 048
  25. MULTI-VITAMIN [Concomitant]

REACTIONS (3)
  - MULTIPLE SCLEROSIS RELAPSE [None]
  - CLOSTRIDIAL INFECTION [None]
  - URINARY TRACT INFECTION [None]
